FAERS Safety Report 11576606 (Version 1)
Quarter: 2015Q3

REPORT INFORMATION
  Report Type: Spontaneous
  Country: US (occurrence: US)
  Receive Date: 20150930
  Receipt Date: 20150930
  Transmission Date: 20151125
  Serious: No
  Sender: FDA-Public Use
  Company Number: US-EISAI MEDICAL RESEARCH-EC-2015-010627

PATIENT
  Sex: Female

DRUGS (6)
  1. BANZEL [Suspect]
     Active Substance: RUFINAMIDE
     Indication: TEMPORAL LOBE EPILEPSY
     Dosage: 400 MG IN AM, 200 MG IN AFTERNOON, 400 MG AT BEDTIME
     Route: 048
     Dates: start: 2014
  2. ATIVAN [Concomitant]
     Active Substance: LORAZEPAM
     Indication: TEMPORAL LOBE EPILEPSY
  3. APTIOM [Concomitant]
     Active Substance: ESLICARBAZEPINE ACETATE
     Indication: TEMPORAL LOBE EPILEPSY
  4. NEURONTIN [Concomitant]
     Active Substance: GABAPENTIN
     Indication: TEMPORAL LOBE EPILEPSY
  5. UNSPECIFIED MEDS FOR HIV [Concomitant]
     Indication: HIV INFECTION
  6. KLONOPIN [Concomitant]
     Active Substance: CLONAZEPAM
     Indication: TEMPORAL LOBE EPILEPSY

REACTIONS (2)
  - Drug effect decreased [Not Recovered/Not Resolved]
  - Vertigo [Not Recovered/Not Resolved]

NARRATIVE: CASE EVENT DATE: 2014
